FAERS Safety Report 11112992 (Version 1)
Quarter: 2015Q2

REPORT INFORMATION
  Report Type: Spontaneous
  Country: US (occurrence: US)
  Receive Date: 20150514
  Receipt Date: 20150514
  Transmission Date: 20150821
  Serious: No
  Sender: FDA-Public Use
  Company Number: US-PFIZER INC-2015158825

PATIENT
  Age: 58 Year
  Sex: Female
  Weight: 58.95 kg

DRUGS (10)
  1. VITAMIN D [Concomitant]
     Active Substance: CHOLECALCIFEROL
     Dosage: 500 MG, 1X/DAY
     Dates: start: 20140617, end: 20140725
  2. NEURONTIN [Suspect]
     Active Substance: GABAPENTIN
     Dosage: 300 MG, 3X/DAY
     Route: 048
     Dates: start: 20141205
  3. LYRICA [Suspect]
     Active Substance: PREGABALIN
     Dosage: 50 MG, 1X/DAY (ONE WEEK)
     Dates: start: 20150316
  4. LYRICA [Suspect]
     Active Substance: PREGABALIN
     Dosage: 50 MG, 2X/DAY
  5. TRAMADOL [Concomitant]
     Active Substance: TRAMADOL
     Indication: PAIN
     Dosage: 50 MG, 1 TABLET EVERY 6 HOURS, AS NEEDED)
     Route: 048
     Dates: start: 20150316
  6. RECLAST [Concomitant]
     Active Substance: ZOLEDRONIC ACID
     Dosage: 5MG/100 ML INTRAVENOUS SOLUTION
     Route: 042
     Dates: start: 20140904
  7. CELEBREX [Suspect]
     Active Substance: CELECOXIB
     Dosage: 200 MG, DAILY
     Route: 048
     Dates: start: 20150316
  8. CALCIUM [Concomitant]
     Active Substance: CALCIUM
     Dosage: 500 MG, 1X/DAY
     Dates: start: 20120123, end: 20140725
  9. NEURONTIN [Suspect]
     Active Substance: GABAPENTIN
     Indication: PAIN
     Dosage: 100 MG, 1X/DAY
     Route: 048
  10. NEURONTIN [Suspect]
     Active Substance: GABAPENTIN
     Dosage: 200 MG, UNK
     Route: 048

REACTIONS (9)
  - Product use issue [Unknown]
  - Paraesthesia [Unknown]
  - Back pain [Unknown]
  - Joint range of motion decreased [Unknown]
  - Myalgia [Unknown]
  - Spinal pain [Unknown]
  - Poor quality sleep [Unknown]
  - Neck pain [Unknown]
  - Pain in extremity [Unknown]
